FAERS Safety Report 5678297-X (Version None)
Quarter: 2008Q1

REPORT INFORMATION
  Report Type: 
  Country: None (occurrence: None)
  Receive Date: 20080324
  Receipt Date: 20080324
  Transmission Date: 20080703
  Serious: Yes (Hospitalization)
  Sender: FDA-Public Use
  Company Number: None

PATIENT
  Age: 66 Year
  Sex: Male
  Weight: 57.8 kg

DRUGS (4)
  1. HURRICAINE 20% BEUTLICH [Suspect]
     Indication: ANAESTHESIA
     Dosage: TOP
     Route: 061
  2. HURRICAINE 20% BEUTLICH [Suspect]
     Indication: ECHOCARDIOGRAM
     Dosage: TOP
     Route: 061
  3. LIDOCAINE VISCOUS [Suspect]
     Indication: ANAESTHESIA
     Dosage: 40ML TOP
     Route: 061
  4. LIDOCAINE VISCOUS [Suspect]
     Indication: ECHOCARDIOGRAM
     Dosage: 40ML TOP
     Route: 061

REACTIONS (3)
  - CYANOSIS [None]
  - HYPOXIA [None]
  - METHAEMOGLOBINAEMIA [None]
